FAERS Safety Report 7788852-9 (Version None)
Quarter: 2011Q3

REPORT INFORMATION
  Report Type: 
  Country: None (occurrence: None)
  Receive Date: 20110930
  Receipt Date: 20110926
  Transmission Date: 20111222
  Serious: No
  Sender: FDA-Public Use
  Company Number: JP-BAYER-2011-060007

PATIENT
  Age: 47 Year
  Sex: Male
  Weight: 70 kg

DRUGS (3)
  1. NEXAVAR [Suspect]
     Indication: ANGIOSARCOMA
     Dosage: 400 MG, QD
     Route: 048
     Dates: start: 20110516, end: 20110523
  2. NEXAVAR [Suspect]
     Dosage: 200 MG, QOD
     Route: 048
     Dates: start: 20110530, end: 20110613
  3. NEXAVAR [Suspect]
     Indication: HEPATIC NEOPLASM MALIGNANT
     Dosage: 200 MG, QD
     Route: 048
     Dates: start: 20110523, end: 20110530

REACTIONS (1)
  - HEPATIC FUNCTION ABNORMAL [None]
